FAERS Safety Report 18031339 (Version 2)
Quarter: 2020Q3

REPORT INFORMATION
  Report Type: Report from Study
  Country: PH (occurrence: PH)
  Receive Date: 20200716
  Receipt Date: 20200804
  Transmission Date: 20201103
  Serious: Yes (Death)
  Sender: FDA-Public Use
  Company Number: NVSC2020PH199252

PATIENT
  Age: 37 Year
  Sex: Male

DRUGS (1)
  1. ENTRESTO [Suspect]
     Active Substance: SACUBITRIL\VALSARTAN
     Indication: PRODUCT USED FOR UNKNOWN INDICATION
     Dosage: 50 MG, BID
     Route: 048
     Dates: start: 201809

REACTIONS (5)
  - Cardiac disorder [Fatal]
  - Embolism [Fatal]
  - Brain herniation [Fatal]
  - Pneumonia [Fatal]
  - Mitral valve incompetence [Fatal]
